FAERS Safety Report 9021895 (Version 1)
Quarter: 2013Q1

REPORT INFORMATION
  Report Type: Spontaneous
  Country: FR (occurrence: FR)
  Receive Date: 20130118
  Receipt Date: 20130118
  Transmission Date: 20140127
  Serious: Yes (Hospitalization)
  Sender: FDA-Public Use
  Company Number: FR-MERCK-1301FRA003763

PATIENT
  Sex: Female

DRUGS (11)
  1. SINEMET 100 MG / 10 MG COMPRIME SECABLE [Suspect]
     Dosage: 1.5 DF, BID
     Route: 048
     Dates: end: 201211
  2. SINEMET 100 MG / 10 MG COMPRIME SECABLE [Suspect]
     Dosage: 1 DF, TID
     Route: 048
     Dates: start: 201211
  3. SINEMET L.P. [Suspect]
     Dosage: 1 DF, QD
     Route: 048
  4. BROMAZEPAM [Concomitant]
  5. CACIT VITAMINE D3 [Concomitant]
     Dosage: 1 G, TID
  6. FORLAX [Concomitant]
     Dosage: 2 DF, QD
  7. MOTILIUM [Concomitant]
     Dosage: 1 DF, BID
  8. PAROXETINE [Concomitant]
     Dosage: 20 MG, QD
  9. STILNOX [Concomitant]
     Dosage: 10 MG, QD
  10. TOPALGIC (TRAMADOL HYDROCHLORIDE) [Concomitant]
     Dosage: 100 MG, BID
     Route: 048
  11. MYOLASTAN [Concomitant]
     Dosage: UNK, PRN

REACTIONS (3)
  - Dysarthria [Recovered/Resolved]
  - Dystonia [Recovered/Resolved]
  - Chorea [Recovered/Resolved]
